FAERS Safety Report 11677828 (Version 2)
Quarter: 2015Q4

REPORT INFORMATION
  Report Type: Spontaneous
  Country: IN (occurrence: IN)
  Receive Date: 20151028
  Receipt Date: 20151105
  Transmission Date: 20160304
  Serious: Yes (Other)
  Sender: FDA-Public Use
  Company Number: IN-ACTAVIS-2015-21287

PATIENT
  Age: 44 Year
  Sex: Male

DRUGS (3)
  1. CLOTRIMAZOLE. [Suspect]
     Active Substance: CLOTRIMAZOLE
     Indication: TINEA CRURIS
     Dosage: UNK UNK, BID
     Route: 061
  2. MICONAZOLE (UNKNOWN) [Suspect]
     Active Substance: MICONAZOLE
     Indication: SKIN TEST
     Dosage: UNK
     Route: 065
  3. FLUCONAZOLE. [Concomitant]
     Active Substance: FLUCONAZOLE
     Indication: TINEA CRURIS
     Dosage: 200 MG, 1/WEEK
     Route: 048

REACTIONS (3)
  - Dermatitis contact [Recovered/Resolved]
  - Drug cross-reactivity [Unknown]
  - Skin test positive [Unknown]
